FAERS Safety Report 5805346-8 (Version None)
Quarter: 2008Q3

REPORT INFORMATION
  Report Type: 
  Country: None (occurrence: None)
  Receive Date: 20080710
  Receipt Date: 20080708
  Transmission Date: 20090109
  Serious: Yes (Death)
  Sender: FDA-Public Use
  Company Number: GB-RANBAXY-2007RR-06065

PATIENT

DRUGS (8)
  1. FLUOXETINE [Suspect]
     Indication: DEPRESSION
     Dosage: 30 MG, QD
     Route: 048
     Dates: start: 20060808
  2. METHOTREXATE [Suspect]
     Indication: SERONEGATIVE ARTHRITIS
     Dosage: 5 MG, 1/WEEK
     Dates: start: 20000710
  3. CO-DYDRAMOL [Concomitant]
     Indication: ARTHRITIS
     Route: 048
     Dates: start: 19980101
  4. DIGOXIN [Concomitant]
     Indication: ATRIAL FIBRILLATION
     Dosage: 250 UG, QD
     Route: 048
     Dates: start: 19990101
  5. FOLIC ACID [Concomitant]
     Dosage: 5 G, 1/WEEK
  6. PRAZOSIN HCL [Concomitant]
     Indication: BLOOD PRESSURE INCREASED
     Dosage: 1 MG, QD
     Route: 048
  7. SULFASALAZINE [Concomitant]
     Dosage: 1000 MG, QD
  8. WARFARIN SODIUM [Concomitant]
     Indication: ATRIAL FIBRILLATION
     Route: 048
     Dates: start: 19980101

REACTIONS (3)
  - PNEUMONIA [None]
  - PNEUMONITIS [None]
  - PULMONARY FIBROSIS [None]
